FAERS Safety Report 6385990-2 (Version None)
Quarter: 2009Q4

REPORT INFORMATION
  Report Type: 
  Country: None (occurrence: None)
  Receive Date: 20091002
  Receipt Date: 20081028
  Transmission Date: 20100525
  Serious: No
  Sender: FDA-Public Use
  Company Number: US-ASTRAZENECA-2008UW24136

PATIENT
  Age: 59 Year
  Sex: Female
  Weight: 113.4 kg

DRUGS (3)
  1. ARIMIDEX [Suspect]
     Indication: BREAST CANCER FEMALE
     Route: 048
     Dates: start: 20040101
  2. LISINOPRIL [Concomitant]
  3. LIPITOR [Concomitant]

REACTIONS (6)
  - ARTHRALGIA [None]
  - ARTHRITIS [None]
  - BRADYPHRENIA [None]
  - FATIGUE [None]
  - HOT FLUSH [None]
  - LYMPHOEDEMA [None]
